FAERS Safety Report 18526246 (Version 1)
Quarter: 2020Q4

REPORT INFORMATION
  Report Type: Spontaneous
  Country: US (occurrence: US)
  Receive Date: 20201120
  Receipt Date: 20201120
  Transmission Date: 20210114
  Serious: No
  Sender: FDA-Public Use
  Company Number: US-CIPLA LTD.-2020US07025

PATIENT

DRUGS (1)
  1. DICLOFENAC [Suspect]
     Active Substance: DICLOFENAC
     Indication: LIMB DISCOMFORT
     Dosage: UNK
     Route: 061
     Dates: start: 202001, end: 202001

REACTIONS (4)
  - Off label use [Unknown]
  - Rash erythematous [Not Recovered/Not Resolved]
  - Product use in unapproved indication [Unknown]
  - Drug hypersensitivity [Not Recovered/Not Resolved]

NARRATIVE: CASE EVENT DATE: 202001
